FAERS Safety Report 16609323 (Version 1)
Quarter: 2019Q3

REPORT INFORMATION
  Report Type: Report from Study
  Country: US (occurrence: US)
  Receive Date: 20190722
  Receipt Date: 20190722
  Transmission Date: 20191004
  Serious: Yes (Life-Threatening, Other)
  Sender: FDA-Public Use
  Company Number: US-RECRO GAINESVILLE LLC-REPH-2019-000128

PATIENT
  Age: 23 Year
  Sex: Male

DRUGS (1)
  1. VERAPAMIL HYDROCHLORIDE SUSTAINED RELEASE [Suspect]
     Active Substance: VERAPAMIL HYDROCHLORIDE
     Dosage: 30-40 240 MILLIGRAM TABLETS, ONE TIME DOSE
     Route: 048

REACTIONS (7)
  - Bradycardia [Recovered/Resolved]
  - Confusional state [Recovered/Resolved]
  - Nodal rhythm [Recovered/Resolved]
  - Aggression [Recovered/Resolved]
  - Suicide attempt [Recovered/Resolved]
  - Rhythm idioventricular [Recovered/Resolved]
  - Hypotension [Recovered/Resolved]
